FAERS Safety Report 23721829 (Version 1)
Quarter: 2024Q2

REPORT INFORMATION
  Report Type: Spontaneous
  Country: CN (occurrence: CN)
  Receive Date: 20240409
  Receipt Date: 20240409
  Transmission Date: 20240716
  Serious: Yes (Hospitalization)
  Sender: FDA-Public Use
  Company Number: CN-SHANGHAI JUNSHI BIOSCIENCES CO., LTD.-CN2024009619

PATIENT
  Age: 58 Year
  Sex: Female
  Weight: 55 kg

DRUGS (3)
  1. TORIPALIMAB [Suspect]
     Active Substance: TORIPALIMAB
     Indication: Papillary serous endometrial carcinoma
     Dosage: 240 MG (D1)
     Route: 041
     Dates: start: 20240221, end: 20240221
  2. DOXORUBICIN HYDROCHLORIDE [Suspect]
     Active Substance: DOXORUBICIN HYDROCHLORIDE
     Indication: Papillary serous endometrial carcinoma
     Dosage: 50 MG (D2)
     Route: 041
     Dates: start: 20240221, end: 20240222
  3. CISPLATIN [Suspect]
     Active Substance: CISPLATIN
     Indication: Papillary serous endometrial carcinoma
     Dosage: 50 MG (D2-D3), QD
     Route: 041
     Dates: start: 20240221, end: 20240223

REACTIONS (2)
  - Myelosuppression [Recovering/Resolving]
  - Off label use [Unknown]

NARRATIVE: CASE EVENT DATE: 20240221
